FAERS Safety Report 15948732 (Version 1)
Quarter: 2019Q1

REPORT INFORMATION
  Report Type: Spontaneous
  Country: GB (occurrence: GB)
  Receive Date: 20190212
  Receipt Date: 20190212
  Transmission Date: 20190417
  Serious: Yes (Hospitalization)
  Sender: FDA-Public Use
  Company Number: GB-ACCORD-106068

PATIENT
  Age: 82 Year
  Sex: Female

DRUGS (17)
  1. AMIODARONE [Concomitant]
     Active Substance: AMIODARONE
     Dosage: TDS FOR 7 DAYS THEN BD FOR 7 DAYS THEN ONCE A DAY. PATIENT DUE TO REDUCE TO TWICE A DAY ON 24-NOV-17
  2. LANSOPRAZOLE. [Concomitant]
     Active Substance: LANSOPRAZOLE
  3. IVABRADINE/IVABRADINE HYDROCHLORIDE [Concomitant]
  4. PERINDOPRIL/PERINDOPRIL ERBUMINE [Suspect]
     Active Substance: PERINDOPRIL ERBUMINE
     Indication: PRODUCT USED FOR UNKNOWN INDICATION
     Dosage: MORNING
  5. DOCUSATE/DOCUSATE CALCIUM/DOCUSATE POTASSIUM/DOCUSATE SODIUM [Concomitant]
  6. FOLIC ACID. [Concomitant]
     Active Substance: FOLIC ACID
  7. BRALTUS [Concomitant]
     Active Substance: TIOTROPIUM BROMIDE
     Dosage: THE CONTENTS OF ONE CAPSULE VIA THE ZONDA DEVICE.
     Route: 055
  8. APIXABAN [Concomitant]
     Active Substance: APIXABAN
  9. EVACAL D3 [Concomitant]
     Dosage: 1500MG/400UNIT
  10. OMEPRAZOLE. [Concomitant]
     Active Substance: OMEPRAZOLE
     Dosage: STOPPED ON LAST ADMISSION AND CHANGED TO LANSOPRAZOLE.
  11. ATORVASTATIN [Concomitant]
     Active Substance: ATORVASTATIN
     Dosage: NIGHTLY
  12. DOXAZOSIN [Concomitant]
     Active Substance: DOXAZOSIN\DOXAZOSIN MESYLATE
  13. FUROSEMIDE. [Suspect]
     Active Substance: FUROSEMIDE
     Indication: PRODUCT USED FOR UNKNOWN INDICATION
     Dosage: MORNING
  14. NICORANDIL [Concomitant]
     Active Substance: NICORANDIL
  15. RANOLAZINE/RANOLAZINE HYDROCHLORIDE [Concomitant]
     Dosage: DOSE INCREASED ON LAST ADMISSION TO 750MG MODIFIED RELEASE TWICE A DAY.
  16. SERETIDE [Concomitant]
     Active Substance: FLUTICASONE PROPIONATE\SALMETEROL XINAFOATE
     Dosage: 50 MICROGRAM /500 MICROGRAM
     Route: 055
  17. MOXONIDINE [Concomitant]
     Active Substance: MOXONIDINE

REACTIONS (1)
  - Acute kidney injury [Recovered/Resolved]
